FAERS Safety Report 5787913-3 (Version None)
Quarter: 2008Q2

REPORT INFORMATION
  Report Type: 
  Country: None (occurrence: None)
  Receive Date: 20080625
  Receipt Date: 20080618
  Transmission Date: 20081010
  Serious: Yes (Hospitalization)
  Sender: FDA-Public Use
  Company Number: A0734624A

PATIENT
  Age: 44 Year
  Sex: Female
  Weight: 46.4 kg

DRUGS (8)
  1. VALTREX [Suspect]
     Indication: ORAL HERPES
     Route: 048
  2. WELLBUTRIN [Suspect]
     Indication: ILL-DEFINED DISORDER
     Route: 048
  3. REBIF [Suspect]
     Indication: MULTIPLE SCLEROSIS
     Dosage: 44MCG VARIABLE DOSE
     Route: 058
     Dates: start: 20080304, end: 20080422
  4. FIORICET [Suspect]
     Indication: MIGRAINE
     Route: 048
     Dates: end: 20080101
  5. LORCET-HD [Suspect]
     Indication: DRUG USE FOR UNKNOWN INDICATION
     Route: 065
  6. REMERON [Suspect]
     Indication: DRUG DEPENDENCE
     Route: 065
  7. SEROQUEL [Concomitant]
     Indication: BIPOLAR DISORDER
  8. CLONAZEPAM [Concomitant]
     Indication: AGORAPHOBIA

REACTIONS (8)
  - CONFUSIONAL STATE [None]
  - DISORIENTATION [None]
  - DRUG ADMINISTRATION ERROR [None]
  - DRUG DEPENDENCE [None]
  - GRAND MAL CONVULSION [None]
  - MEDICATION ERROR [None]
  - TIC [None]
  - TONGUE PARALYSIS [None]
